FAERS Safety Report 10242451 (Version 1)
Quarter: 2014Q2

REPORT INFORMATION
  Report Type: Spontaneous
  Country: US (occurrence: US)
  Receive Date: 20140617
  Receipt Date: 20140617
  Transmission Date: 20141212
  Serious: Yes (Other)
  Sender: FDA-Public Use
  Company Number: US-TEVA-486954USA

PATIENT
  Sex: Female
  Weight: 72.64 kg

DRUGS (3)
  1. MODAFINIL [Suspect]
     Indication: HYPERSOMNIA
  2. MODAFINIL [Suspect]
     Indication: NARCOLEPSY
  3. CELEXA [Concomitant]
     Indication: DEPRESSION

REACTIONS (6)
  - Aphagia [Not Recovered/Not Resolved]
  - Menorrhagia [Not Recovered/Not Resolved]
  - Cough [Not Recovered/Not Resolved]
  - Vomiting [Not Recovered/Not Resolved]
  - Adverse event [Unknown]
  - Off label use [Unknown]
